FAERS Safety Report 10347972 (Version 2)
Quarter: 2015Q1

REPORT INFORMATION
  Report Type: Spontaneous
  Country: US (occurrence: None)
  Receive Date: 20140725
  Receipt Date: 20150126
  Transmission Date: 20150720
  Serious: Yes (Hospitalization)
  Sender: FDA-Public Use
  Company Number: UNT-2014-004103

PATIENT
  Age: 66 Year
  Sex: Female

DRUGS (23)
  1. AMLODIPINE [Concomitant]
     Active Substance: AMLODIPINE BESYLATE
  2. NEURONTIN [Concomitant]
     Active Substance: GABAPENTIN
  3. WELLBUTRIN [Concomitant]
     Active Substance: BUPROPION HYDROCHLORIDE
  4. FLONASE (MOMETASONE FUROATE) [Concomitant]
  5. GLUCOTROL (GLIPIZIDE) .5% [Concomitant]
  6. LIDODERM (LIDOCAINE) PATCH .5% [Concomitant]
  7. VOLTAREN (DICLOFENAC) [Concomitant]
  8. MECLIZINE (MECLOZINE) [Concomitant]
  9. PERCOCET (OXYCODONE HYDROCHLORIDE, OXYCODONE TEREPHTHALATE, PARACETAMOL) [Concomitant]
  10. ASPIRIN (E.C.) (ACETYLSALICYLIC ACID) [Concomitant]
  11. ADCIRCA [Concomitant]
     Active Substance: TADALAFIL
  12. GLIPIZIDE (GLIPIZIDE) [Concomitant]
     Active Substance: GLIPIZIDE
  13. TORSEMIDE (TORASEMIDE) [Concomitant]
  14. ADVAIR DISKUS [Concomitant]
     Active Substance: FLUTICASONE PROPIONATE\SALMETEROL XINAFOATE
  15. ALBUTEROL (SALBUTAMOL) [Concomitant]
     Active Substance: ALBUTEROL
  16. LORATADINE (LORATADINE) [Concomitant]
  17. COUMADIN [Concomitant]
     Active Substance: WARFARIN SODIUM
  18. NYSTATIN (NYSTATIN) [Concomitant]
     Active Substance: NYSTATIN
  19. DEPAKOTE [Concomitant]
     Active Substance: DIVALPROEX SODIUM
  20. ABILIFY [Concomitant]
     Active Substance: ARIPIPRAZOLE
  21. POTASSIUM (POTASSIUM) [Concomitant]
     Active Substance: POTASSIUM
  22. REMODULIN [Suspect]
     Active Substance: TREPROSTINIL
     Indication: PULMONARY ARTERIAL HYPERTENSION
     Route: 041
     Dates: start: 20111010
  23. DOXYCYCLINE. [Concomitant]
     Active Substance: DOXYCYCLINE

REACTIONS (5)
  - Oedema peripheral [None]
  - Pain in extremity [None]
  - Tenderness [None]
  - Erythema [None]
  - Cellulitis [None]

NARRATIVE: CASE EVENT DATE: 20140709
